FAERS Safety Report 21252622 (Version 1)
Quarter: 2022Q3

REPORT INFORMATION
  Report Type: Spontaneous
  Country: US (occurrence: US)
  Receive Date: 20220825
  Receipt Date: 20220825
  Transmission Date: 20221026
  Serious: No
  Sender: FDA-Public Use
  Company Number: ENDG22-03037

PATIENT
  Age: 56 Year
  Sex: Male

DRUGS (2)
  1. VARENICLINE [Suspect]
     Active Substance: VARENICLINE
     Indication: Smoking cessation therapy
     Dosage: 1 MG, BID
     Route: 048
     Dates: start: 20211026, end: 20220411
  2. VITAMIN D2 [Concomitant]
     Active Substance: ERGOCALCIFEROL
     Indication: Product used for unknown indication
     Dosage: UNK UNKNOWN, UNKNOWN
     Route: 065

REACTIONS (4)
  - Aggression [Unknown]
  - Depression [Not Recovered/Not Resolved]
  - Disturbance in attention [Unknown]
  - Insomnia [Unknown]

NARRATIVE: CASE EVENT DATE: 20211214
